FAERS Safety Report 6186815-0 (Version None)
Quarter: 2009Q2

REPORT INFORMATION
  Report Type: 
  Country: None (occurrence: None)
  Receive Date: 20090512
  Receipt Date: 20090505
  Transmission Date: 20091009
  Serious: Yes (Other)
  Sender: FDA-Public Use
  Company Number: US-BAYER-200913526NA

PATIENT
  Age: 34 Year
  Sex: Female
  Weight: 122 kg

DRUGS (1)
  1. MIRENA [Suspect]
     Indication: DYSFUNCTIONAL UTERINE BLEEDING
     Dosage: CONTINUOUS
     Route: 015
     Dates: start: 20090115, end: 20090223

REACTIONS (1)
  - IUD MIGRATION [None]
